FAERS Safety Report 9853257 (Version 1)
Quarter: 2014Q1

REPORT INFORMATION
  Report Type: Spontaneous
  Country: US (occurrence: US)
  Receive Date: 20140129
  Receipt Date: 20140129
  Transmission Date: 20141002
  Serious: Yes (Hospitalization)
  Sender: FDA-Public Use
  Company Number: US-BAYER-2014-013635

PATIENT
  Age: 64 Year
  Sex: Female

DRUGS (8)
  1. OXYMETAZOLINE HYDROCHLORIDE [Suspect]
     Indication: NASAL CONGESTION
     Route: 045
  2. AZITHROMYCIN [Concomitant]
  3. MOMETASONE [Concomitant]
  4. METFORMIN [Concomitant]
     Dosage: 500 MG, BID
  5. NATEGLINIDE [Concomitant]
     Dosage: 60 MG, BID
  6. ATORVASTATIN [Concomitant]
     Dosage: 10 MG, DAILY
  7. TRIAMTEREN [Concomitant]
     Dosage: 37.5 MG, DAILY
  8. LOSARTAN [Concomitant]
     Dosage: 50 MG, DAILY

REACTIONS (1)
  - Acute myocardial infarction [Recovered/Resolved]
